FAERS Safety Report 21494876 (Version 1)
Quarter: 2022Q4

REPORT INFORMATION
  Report Type: Spontaneous
  Country: IT (occurrence: IT)
  Receive Date: 20221022
  Receipt Date: 20221022
  Transmission Date: 20230112
  Serious: Yes (Other)
  Sender: FDA-Public Use
  Company Number: None

PATIENT
  Age: 28 Year
  Sex: Male
  Weight: 110 kg

DRUGS (1)
  1. STELARA [Suspect]
     Active Substance: USTEKINUMAB
     Indication: Psoriasis
     Dosage: 1 SP 90 MG ALLA SETTIMANA 0 , POI ALLA SETTIMANA 4 E POI SP 90 MG / 12 SETTIMANE
     Route: 058

REACTIONS (2)
  - Eczema [Unknown]
  - Loss of therapeutic response [Recovering/Resolving]

NARRATIVE: CASE EVENT DATE: 20220512
